FAERS Safety Report 11794886 (Version 1)
Quarter: 2015Q4

REPORT INFORMATION
  Report Type: Spontaneous
  Country: GB (occurrence: GB)
  Receive Date: 20151202
  Receipt Date: 20151202
  Transmission Date: 20160305
  Serious: Yes (Hospitalization)
  Sender: FDA-Public Use
  Company Number: GB-TEVA-610893ACC

PATIENT
  Age: 82 Year
  Sex: Male
  Weight: 95.25 kg

DRUGS (9)
  1. COCODAMOL [Concomitant]
     Active Substance: ACETAMINOPHEN\CODEINE PHOSPHATE
     Dosage: PREVIOUSLY TAKEN 30/500 COCODOMOL FOR SOME WEEKS, STOPPED TAKING SHORTLY AFTER STARTING GABAPENTIN.
  2. SIMVASTATIN. [Concomitant]
     Active Substance: SIMVASTATIN
  3. LOSARTAN. [Concomitant]
     Active Substance: LOSARTAN
  4. GABAPENTIN. [Suspect]
     Active Substance: GABAPENTIN
     Indication: NEURALGIA
     Dosage: 100MG X 2 PLUS 200MG X 1DAILY. AT LEAST 2 HOURS BEFORE OR AFTER OMAPRAZOLE.
     Route: 048
     Dates: start: 20151102, end: 20151104
  5. ASPIRIN. [Concomitant]
     Active Substance: ASPIRIN
  6. FUROSEMIDE. [Concomitant]
     Active Substance: FUROSEMIDE
  7. OMEPRAZOLE. [Concomitant]
     Active Substance: OMEPRAZOLE
  8. NICORANDIL [Concomitant]
     Active Substance: NICORANDIL
  9. GABAPENTIN. [Suspect]
     Active Substance: GABAPENTIN
     Indication: NEURALGIA
     Dosage: 300 MILLIGRAM DAILY; AT LEAST 2 HOURS BEFORE OR AFTER OMAPRAZOLE
     Route: 048
     Dates: start: 20151026, end: 20151101

REACTIONS (6)
  - Restless legs syndrome [Recovered/Resolved]
  - Hypoaesthesia [Recovered/Resolved]
  - Night sweats [Recovered/Resolved]
  - Heart rate increased [Recovered/Resolved]
  - Agitation [Recovered/Resolved]
  - Abdominal pain upper [Recovered/Resolved]

NARRATIVE: CASE EVENT DATE: 20151027
